FAERS Safety Report 5362331-0 (Version None)
Quarter: 2007Q2

REPORT INFORMATION
  Report Type: 
  Country: None (occurrence: None)
  Receive Date: 20070619
  Receipt Date: 20070608
  Transmission Date: 20071010
  Serious: Yes (Other)
  Sender: FDA-Public Use
  Company Number: GB-JNJFOC-20070602154

PATIENT
  Age: 54 Year
  Sex: Male
  Weight: 70 kg

DRUGS (4)
  1. REMICADE [Suspect]
     Dosage: DOSAGE INTERVAL: ^1 /2WEEKS^
     Route: 042
  2. REMICADE [Suspect]
     Indication: PSORIATIC ARTHROPATHY
     Dosage: DOSAGE INTERVAL: ^1 /2WEEKS^
     Route: 042
  3. FOLIC ACID [Concomitant]
     Route: 048
  4. METHOTREXATE [Concomitant]
     Indication: PSORIATIC ARTHROPATHY
     Route: 048

REACTIONS (6)
  - ABDOMINAL PAIN UPPER [None]
  - HYPOTENSION [None]
  - INFUSION RELATED REACTION [None]
  - OXYGEN SATURATION DECREASED [None]
  - PYREXIA [None]
  - TACHYCARDIA [None]
